FAERS Safety Report 10419346 (Version 1)
Quarter: 2014Q3

REPORT INFORMATION
  Report Type: Spontaneous
  Country: US (occurrence: US)
  Receive Date: 20140829
  Receipt Date: 20140829
  Transmission Date: 20150326
  Serious: Yes (Other)
  Sender: FDA-Public Use
  Company Number: US-MYLAN-2014M1001945

PATIENT

DRUGS (2)
  1. PHENYTEK [Suspect]
     Active Substance: PHENYTOIN SODIUM
     Indication: CONVULSION
     Dosage: 200 MG, QD
     Route: 048
  2. PHENYTEK [Suspect]
     Active Substance: PHENYTOIN SODIUM
     Indication: CONVULSION
     Dosage: 300 MG, QD
     Route: 048

REACTIONS (3)
  - Anticonvulsant drug level decreased [Recovered/Resolved]
  - Generalised tonic-clonic seizure [Recovered/Resolved]
  - Drug ineffective [Recovered/Resolved]

NARRATIVE: CASE EVENT DATE: 201406
